FAERS Safety Report 22624004 (Version 1)
Quarter: 2023Q2

REPORT INFORMATION
  Report Type: Spontaneous
  Country: US (occurrence: None)
  Receive Date: 20230616
  Receipt Date: 20230616
  Transmission Date: 20230722
  Serious: No
  Sender: FDA-Public Use
  Company Number: None

PATIENT
  Age: 77 Year
  Sex: Female
  Weight: 74.39 kg

DRUGS (33)
  1. LENALIDOMIDE [Suspect]
     Active Substance: LENALIDOMIDE
     Indication: Plasma cell myeloma
     Dosage: OTHER FREQUENCY : 21D ON 7D OFF;?
     Route: 048
     Dates: start: 202304
  2. ACETAMINOPHEN [Concomitant]
     Active Substance: ACETAMINOPHEN
  3. APRESOLINE HYDROCHLORIDE [Concomitant]
     Active Substance: HYDRALAZINE HYDROCHLORIDE
  4. ASPIRIN [Concomitant]
     Active Substance: ASPIRIN
  5. MINERALS\VITAMINS [Concomitant]
     Active Substance: MINERALS\VITAMINS
  6. COZAAR [Concomitant]
     Active Substance: LOSARTAN POTASSIUM
  7. CRANBERRY [Concomitant]
     Active Substance: CRANBERRY
  8. DEXILANT [Concomitant]
     Active Substance: DEXLANSOPRAZOLE
  9. EPINASTINE [Concomitant]
     Active Substance: EPINASTINE
  10. ESTRACE [Concomitant]
     Active Substance: ESTRADIOL
  11. FENTANYL [Concomitant]
     Active Substance: FENTANYL
  12. GABAPENTIN [Concomitant]
     Active Substance: GABAPENTIN
  13. JANUVIA [Concomitant]
     Active Substance: SITAGLIPTIN PHOSPHATE
  14. LACTASE [Concomitant]
     Active Substance: LACTASE
  15. LIPITOR [Concomitant]
     Active Substance: ATORVASTATIN CALCIUM
  16. METAMUCIL [Concomitant]
     Active Substance: PLANTAGO SEED
  17. METOPROLOL [Concomitant]
     Active Substance: METOPROLOL
  18. NARCAN [Concomitant]
     Active Substance: NALOXONE HYDROCHLORIDE
  19. NITROSTAT [Concomitant]
     Active Substance: NITROGLYCERIN
  20. NORCO [Concomitant]
     Active Substance: ACETAMINOPHEN\HYDROCODONE BITARTRATE
  21. NYSTATIN [Concomitant]
     Active Substance: NYSTATIN
  22. OLANZAPINE [Concomitant]
     Active Substance: OLANZAPINE
  23. PANTOPRAZOLE [Concomitant]
     Active Substance: PANTOPRAZOLE
  24. PEPCID [Concomitant]
     Active Substance: FAMOTIDINE
  25. PLAVIX [Concomitant]
     Active Substance: CLOPIDOGREL BISULFATE
  26. POTASSIUM CHLORIDE [Concomitant]
     Active Substance: POTASSIUM CHLORIDE
  27. PROBIOTIC COMPLEX [Concomitant]
  28. REFRESH CLASSIC [Concomitant]
     Active Substance: POLYVINYL ALCOHOL\POVIDONE
  29. SENOKOT-S [Concomitant]
     Active Substance: DOCUSATE SODIUM\SENNOSIDES
  30. VALACYCLOVIR [Concomitant]
     Active Substance: VALACYCLOVIR HYDROCHLORIDE
  31. ZOLOFT [Concomitant]
     Active Substance: SERTRALINE HYDROCHLORIDE
  32. ZOMETA [Concomitant]
     Active Substance: ZOLEDRONIC ACID
  33. ZYRTEC [Concomitant]
     Active Substance: CETIRIZINE HYDROCHLORIDE

REACTIONS (1)
  - Neoplasm [None]
